FAERS Safety Report 5510782-3 (Version None)
Quarter: 2007Q4

REPORT INFORMATION
  Report Type: 
  Country: None (occurrence: None)
  Receive Date: 20071108
  Receipt Date: 20071101
  Transmission Date: 20080405
  Serious: Yes (Hospitalization)
  Sender: FDA-Public Use
  Company Number: B0494378A

PATIENT
  Age: 71 Year
  Sex: Male

DRUGS (11)
  1. HYCAMTIN [Suspect]
     Dosage: 1.6MG PER DAY
     Dates: start: 20070719, end: 20070925
  2. LANSOPRAZOLE [Concomitant]
     Dosage: 30MG PER DAY
     Route: 048
  3. ALLOPURINOL [Concomitant]
     Dosage: 100MG PER DAY
     Route: 048
  4. MAGNESIUM OXIDE [Concomitant]
     Dosage: 1000MG PER DAY
     Route: 048
  5. DICLOFENAC SODIUM [Concomitant]
     Dosage: 75MG PER DAY
     Route: 048
  6. OXYCODONE HYDROCHLORIDE [Concomitant]
     Dosage: 20MG PER DAY
     Route: 048
  7. FAROPENEM SODIUM [Concomitant]
     Dosage: 600MG PER DAY
     Route: 048
  8. OXYCODONE HYDROCHLORIDE [Concomitant]
     Dosage: 5MG PER DAY
     Route: 048
  9. SODIUM PICOSULPHATE [Concomitant]
     Route: 048
  10. TRIAMCINOLONE ACETONIDE [Concomitant]
  11. VACCINE [Concomitant]

REACTIONS (3)
  - INTESTINAL PERFORATION [None]
  - PYREXIA [None]
  - VOMITING [None]
